FAERS Safety Report 24080718 (Version 2)
Quarter: 2024Q3

REPORT INFORMATION
  Report Type: Report from Study
  Country: US (occurrence: None)
  Receive Date: 20240711
  Receipt Date: 20240801
  Transmission Date: 20241016
  Serious: Yes (Hospitalization, Other)
  Sender: ASTRAZENECA
  Company Number: 2024A155142

PATIENT
  Age: 62 Year
  Sex: Female
  Weight: 81.6 kg

DRUGS (16)
  1. FASENRA [Suspect]
     Active Substance: BENRALIZUMAB
     Indication: Asthma
     Dosage: 30UG/ML EVERY FOUR WEEKS
     Route: 058
     Dates: start: 20240508
  2. ALBUTEROL [Concomitant]
     Active Substance: ALBUTEROL
  3. ELIQUIS [Concomitant]
     Active Substance: APIXABAN
     Route: 048
  4. CALCIUM [Concomitant]
     Active Substance: CALCIUM
  5. FISH OIL [Concomitant]
     Active Substance: FISH OIL
  6. MONTELUKAST [Concomitant]
     Active Substance: MONTELUKAST SODIUM
  7. FUROSEMIDE [Concomitant]
     Active Substance: FUROSEMIDE
  8. METOPROLOL SUCCINATE [Concomitant]
     Active Substance: METOPROLOL SUCCINATE
  9. TRINTELLIX [Concomitant]
     Active Substance: VORTIOXETINE HYDROBROMIDE
  10. ATORVASTATIN CALCIUM [Concomitant]
     Active Substance: ATORVASTATIN CALCIUM
     Route: 048
  11. ENTRESTO [Concomitant]
     Active Substance: SACUBITRIL\VALSARTAN
     Dosage: 24-26 MG
     Route: 048
  12. SPIRONOLACTONE [Concomitant]
     Active Substance: SPIRONOLACTONE
     Route: 048
  13. LASIX [Concomitant]
     Active Substance: FUROSEMIDE
     Route: 048
  14. AMIODARONE HYDROCHLORIDE [Concomitant]
     Active Substance: AMIODARONE HYDROCHLORIDE
     Route: 048
  15. TRELEGY ELLIPTA [Concomitant]
     Active Substance: FLUTICASONE FUROATE\UMECLIDINIUM BROMIDE\VILANTEROL TRIFENATATE
     Dosage: 100-62.5-25 MCG
     Route: 048
  16. FLONASE [Concomitant]
     Active Substance: FLUTICASONE PROPIONATE
     Route: 045

REACTIONS (24)
  - Deep vein thrombosis [Unknown]
  - Thrombosis [Unknown]
  - Multiple fractures [Unknown]
  - Diverticulitis [Unknown]
  - Cardiac failure congestive [Unknown]
  - Illness [Unknown]
  - Dyspnoea [Unknown]
  - Cough [Unknown]
  - Wheezing [Unknown]
  - Pulmonary congestion [Unknown]
  - Neuropathy peripheral [Unknown]
  - Hunger [Unknown]
  - Phlebitis [Unknown]
  - Anxiety [Unknown]
  - Depression [Unknown]
  - Arthritis [Unknown]
  - Osteoporosis [Unknown]
  - Nasal congestion [Unknown]
  - Breath sounds abnormal [Unknown]
  - Peripheral pulse decreased [Unknown]
  - Drug ineffective [Unknown]
  - Thirst [Unknown]
  - Social avoidant behaviour [Unknown]
  - Nervousness [Unknown]
